FAERS Safety Report 15543105 (Version 1)
Quarter: 2018Q4

REPORT INFORMATION
  Report Type: Spontaneous
  Country: AU (occurrence: AU)
  Receive Date: 20181023
  Receipt Date: 20181023
  Transmission Date: 20190205
  Serious: Yes (Other)
  Sender: FDA-Public Use
  Company Number: AU-ASTRAZENECA-2018SF23354

PATIENT
  Age: 73 Year
  Sex: Male

DRUGS (1)
  1. BYDUREON [Suspect]
     Active Substance: EXENATIDE
     Route: 065

REACTIONS (5)
  - Injection site pain [Unknown]
  - Myocardial infarction [Unknown]
  - Device malfunction [Unknown]
  - Product dose omission [Unknown]
  - Incorrect dose administered by device [Unknown]
